FAERS Safety Report 25068036 (Version 1)
Quarter: 2025Q1

REPORT INFORMATION
  Report Type: Spontaneous
  Country: US (occurrence: US)
  Receive Date: 20250312
  Receipt Date: 20250312
  Transmission Date: 20250408
  Serious: Yes (Congenital Anomaly)
  Sender: MYLAN
  Company Number: US-MYLANLABS-2025M1018792

PATIENT

DRUGS (24)
  1. SPIRONOLACTONE [Suspect]
     Active Substance: SPIRONOLACTONE
     Indication: Product used for unknown indication
  2. SPIRONOLACTONE [Suspect]
     Active Substance: SPIRONOLACTONE
  3. SPIRONOLACTONE [Suspect]
     Active Substance: SPIRONOLACTONE
     Route: 064
  4. SPIRONOLACTONE [Suspect]
     Active Substance: SPIRONOLACTONE
     Route: 064
  5. SPIRONOLACTONE [Suspect]
     Active Substance: SPIRONOLACTONE
  6. SPIRONOLACTONE [Suspect]
     Active Substance: SPIRONOLACTONE
  7. SPIRONOLACTONE [Suspect]
     Active Substance: SPIRONOLACTONE
     Route: 064
  8. SPIRONOLACTONE [Suspect]
     Active Substance: SPIRONOLACTONE
     Route: 064
  9. WARFARIN [Suspect]
     Active Substance: WARFARIN
     Indication: Anticoagulant therapy
  10. WARFARIN [Suspect]
     Active Substance: WARFARIN
  11. WARFARIN [Suspect]
     Active Substance: WARFARIN
     Route: 064
  12. WARFARIN [Suspect]
     Active Substance: WARFARIN
     Route: 064
  13. WARFARIN [Suspect]
     Active Substance: WARFARIN
  14. WARFARIN [Suspect]
     Active Substance: WARFARIN
  15. WARFARIN [Suspect]
     Active Substance: WARFARIN
     Route: 064
  16. WARFARIN [Suspect]
     Active Substance: WARFARIN
     Route: 064
  17. ENOXAPARIN [Suspect]
     Active Substance: ENOXAPARIN
     Indication: Anticoagulant therapy
  18. ENOXAPARIN [Suspect]
     Active Substance: ENOXAPARIN
  19. ENOXAPARIN [Suspect]
     Active Substance: ENOXAPARIN
     Route: 064
  20. ENOXAPARIN [Suspect]
     Active Substance: ENOXAPARIN
     Route: 064
  21. ENOXAPARIN [Suspect]
     Active Substance: ENOXAPARIN
  22. ENOXAPARIN [Suspect]
     Active Substance: ENOXAPARIN
  23. ENOXAPARIN [Suspect]
     Active Substance: ENOXAPARIN
     Route: 064
  24. ENOXAPARIN [Suspect]
     Active Substance: ENOXAPARIN
     Route: 064

REACTIONS (2)
  - Teratogenicity [Unknown]
  - Foetal exposure during pregnancy [Recovered/Resolved]
